FAERS Safety Report 4642783-1 (Version None)
Quarter: 2005Q2

REPORT INFORMATION
  Report Type: 
  Country: None (occurrence: None)
  Receive Date: 20050421
  Receipt Date: 20050405
  Transmission Date: 20051028
  Serious: Yes (Other)
  Sender: FDA-Public Use
  Company Number: 04-000339

PATIENT
  Sex: Male

DRUGS (1)
  1. PYRIDIUM(PHENAZOPYRIDINE HYDROCHLORIDE) TABLET, 100MG [Suspect]

REACTIONS (2)
  - MEDICATION ERROR [None]
  - METHAEMOGLOBINAEMIA [None]
